FAERS Safety Report 23217815 (Version 1)
Quarter: 2023Q4

REPORT INFORMATION
  Report Type: Report from Study
  Country: US (occurrence: None)
  Receive Date: 20231122
  Receipt Date: 20231122
  Transmission Date: 20240110
  Serious: Yes (Disabling, Other)
  Sender: FDA-Public Use
  Company Number: 2023A260979

PATIENT
  Sex: Female

DRUGS (1)
  1. FARXIGA [Suspect]
     Active Substance: DAPAGLIFLOZIN PROPANEDIOL
     Route: 048

REACTIONS (6)
  - Lyme disease [Unknown]
  - Single functional kidney [Unknown]
  - Disability [Unknown]
  - Chronic kidney disease [Unknown]
  - Urinary incontinence [Unknown]
  - Cerebral disorder [Unknown]
